FAERS Safety Report 6673148-9 (Version None)
Quarter: 2010Q2

REPORT INFORMATION
  Report Type: 
  Country: None (occurrence: None)
  Receive Date: 20100408
  Receipt Date: 20100406
  Transmission Date: 20101027
  Serious: Yes (Other)
  Sender: FDA-Public Use
  Company Number: CHPA2010CH06224

PATIENT
  Age: 20 Year
  Sex: Female

DRUGS (2)
  1. RESYL (NCH) [Suspect]
     Indication: NASOPHARYNGITIS
     Dosage: 1 DF, ONCE/SINGLE
     Route: 048
     Dates: start: 20091223, end: 20091223
  2. ALGIFOR [Suspect]
     Indication: NASOPHARYNGITIS
     Dosage: 1 DF, ONCE/SINGLE
     Route: 048
     Dates: start: 20091223, end: 20091223

REACTIONS (4)
  - ANGIOEDEMA [None]
  - HYPERSENSITIVITY [None]
  - PRURITUS [None]
  - URTICARIA [None]
